FAERS Safety Report 6529419-X (Version None)
Quarter: 2010Q1

REPORT INFORMATION
  Report Type: 
  Country: None (occurrence: None)
  Receive Date: 20100107
  Receipt Date: 20091230
  Transmission Date: 20100710
  Serious: Yes (Other)
  Sender: FDA-Public Use
  Company Number: US-BAYER-200942016NA

PATIENT
  Age: 53 Year
  Sex: Female

DRUGS (4)
  1. BETASERON [Suspect]
     Indication: PRIMARY PROGRESSIVE MULTIPLE SCLEROSIS
     Dosage: AS USED: 8 MIU
     Route: 058
     Dates: end: 20080101
  2. ATENOLOL [Concomitant]
  3. NSAID'S [Concomitant]
     Indication: ARTHRITIS
  4. INSULIN [Concomitant]

REACTIONS (3)
  - HEPATIC FAILURE [None]
  - HERNIA [None]
  - LIVER FUNCTION TEST ABNORMAL [None]
